FAERS Safety Report 23064833 (Version 1)
Quarter: 2023Q4

REPORT INFORMATION
  Report Type: Report from Study
  Country: GB (occurrence: GB)
  Receive Date: 20231013
  Receipt Date: 20231013
  Transmission Date: 20240109
  Serious: Yes (Other)
  Sender: FDA-Public Use
  Company Number: GB-CLINIGEN-GB-CLI-2023-031133

PATIENT
  Age: 45 Year
  Sex: Female
  Weight: 66.2 kg

DRUGS (58)
  1. FLUDARABINE [Suspect]
     Active Substance: FLUDARABINE PHOSPHATE
     Indication: Neoplasm
     Dosage: 43 MILLIGRAM DAILY; 43 MILLIGRAM, QD, DURATION : 2 DAYS
     Route: 042
     Dates: start: 20230910, end: 20230911
  2. CYCLOPHOSPHAMIDE [Suspect]
     Active Substance: CYCLOPHOSPHAMIDE
     Indication: Neoplasm
     Dosage: 4044 MILLIGRAM DAILY; 4044 MILLIGRAM, QD ONCE, DURATION : 5 DAYS
     Route: 042
     Dates: start: 20230905, end: 20230909
  3. INVESTIGATIONAL PRODUCT [Suspect]
     Active Substance: INVESTIGATIONAL PRODUCT
     Indication: Neoplasm
     Dosage: 1 X 10^9 X 150 X10^9 AT ONCE, 3 BAGS; DURATION : 1 DAY
     Route: 042
     Dates: start: 20230912, end: 20230912
  4. LIFILEUCEL [Suspect]
     Active Substance: LIFILEUCEL
     Indication: Neoplasm
     Dosage: 1 X 10^9 X 150 X10^9 AT ONCE, 3 BAGS; DURATION : 1 DAY
     Route: 042
     Dates: start: 20230912, end: 20230912
  5. LIFILEUCEL [Suspect]
     Active Substance: LIFILEUCEL
     Indication: Neoplasm
     Dosage: 1 X 10^9 X 150 X10^9 AT ONCE, 3 BAGS; DURATION : 1 DAY
     Route: 042
     Dates: start: 20230912, end: 20230912
  6. PEMBROLIZUMAB [Suspect]
     Active Substance: PEMBROLIZUMAB
     Indication: Neoplasm
     Dosage: 400 MILLIGRAM, ONCE IN 6 WEEKS; THERAPY END DATE : NASK
     Route: 042
     Dates: start: 20230816
  7. PROLEUKIN [Suspect]
     Active Substance: ALDESLEUKIN
     Indication: Neoplasm
     Dosage: 79.2 MU DAILY; 39.6 MILION UNITS, BID; DURATION : 3 DAYS
     Route: 042
     Dates: start: 20230913, end: 20230915
  8. ACYCLOVIR [Concomitant]
     Active Substance: ACYCLOVIR
     Indication: Antiviral prophylaxis
     Dosage: 3600 MILLIGRAM DAILY; UNK, TID, UNIT DOSE : 1200 MG
     Route: 050
     Dates: start: 20230905
  9. ADCAL [Concomitant]
     Indication: Vitamin supplementation
     Dosage: 2 DOSAGE FORMS DAILY; 1 DOSAGE FORM, BID, UNIT DOSE : 2 DF, FREQUENCY TIME : 1 DAY
     Route: 050
     Dates: start: 20230907
  10. AMIKACIN [Concomitant]
     Active Substance: AMIKACIN
     Indication: Sepsis
     Dosage: 15 MILLIGRAM/KILOGRAM, ONLY ONCE; DURATION : 1 DAY
     Route: 050
     Dates: start: 20230914, end: 20230914
  11. AMIKACIN [Concomitant]
     Active Substance: AMIKACIN
     Indication: Pyrexia
  12. BENZYDAMINE [Concomitant]
     Active Substance: BENZYDAMINE
     Indication: Oropharyngeal pain
     Dosage: SWISH + SPIT, PRN; AS NECESSARY?					;
     Dates: start: 20230909
  13. BENZYDAMINE [Concomitant]
     Active Substance: BENZYDAMINE
     Indication: Mucosal inflammation
  14. BETAMETHASONE VALERATE [Concomitant]
     Active Substance: BETAMETHASONE VALERATE
     Indication: Rash
     Dosage: UNK, QD;
     Route: 050
     Dates: start: 20230919
  15. BETNOVATE [Concomitant]
     Active Substance: BETAMETHASONE
     Indication: Rash
     Dosage: TWICE A DAYS, AS PER NEED; AS NECESSARY, DURATION : 6 DAYS
     Route: 061
     Dates: start: 20230914, end: 20230919
  16. BETNOVATE [Concomitant]
     Active Substance: BETAMETHASONE
     Dosage: UNK, PRN; AS NECESSARY?					;
     Route: 061
     Dates: start: 20230920
  17. CHLORPHENIRAMINE MALEATE [Concomitant]
     Active Substance: CHLORPHENIRAMINE MALEATE
     Indication: Hypersensitivity
     Dosage: 5 MG, FREQUENCY TIME : 1 DAY, DURATION : 2 DAYS
     Route: 050
     Dates: start: 20230916, end: 20230917
  18. CHLORPHENIRAMINE MALEATE [Concomitant]
     Active Substance: CHLORPHENIRAMINE MALEATE
     Indication: Pruritus
     Dosage: 4 MG, PRN, TABLET; AS NECESSARY, DURATION : 1 DAYS
     Route: 050
     Dates: start: 20230917, end: 20230917
  19. CHLORPHENIRAMINE MALEATE [Concomitant]
     Active Substance: CHLORPHENIRAMINE MALEATE
     Indication: Prophylaxis
     Dosage: 10 MG, PRN, INJECTION; AS NECESSARY
     Route: 050
     Dates: start: 20230912
  20. CHLORPHENIRAMINE MALEATE [Concomitant]
     Active Substance: CHLORPHENIRAMINE MALEATE
     Indication: Rash
  21. CLOTRIMAZOLE [Concomitant]
     Active Substance: CLOTRIMAZOLE
     Indication: Rash
     Dosage: BID
     Route: 050
     Dates: start: 20230917
  22. COTRIMOXAZOLE [Concomitant]
     Active Substance: SULFAMETHOXAZOLE\TRIMETHOPRIM
     Indication: Antibiotic prophylaxis
     Dosage: 480 MILLIGRAM, TWICE A DAY ON MON, WED, FRI, UNIT DOSE : 1440 MG, FREQUENCY TIME : 1 WEEK
     Route: 050
     Dates: start: 20230906
  23. ISOPROPYL MYRISTATE\MINERAL OIL [Concomitant]
     Active Substance: ISOPROPYL MYRISTATE\MINERAL OIL
     Indication: Rash
     Dosage: UNK, PRN; AS NECESSARY?					;
     Route: 061
     Dates: start: 20230919
  24. ISOPROPYL MYRISTATE\MINERAL OIL [Concomitant]
     Active Substance: ISOPROPYL MYRISTATE\MINERAL OIL
     Indication: Dry skin
  25. FAMOTIDINE [Concomitant]
     Active Substance: FAMOTIDINE
     Indication: Reflux gastritis
     Dosage: 40 MILLIGRAM DAILY; 20 MILLIGRAM, BID, UNIT DOSE: 40 MG, FREQUENCY TIME: 1 DAY
     Route: 050
     Dates: start: 20230909
  26. FILGRASTIM [Concomitant]
     Active Substance: FILGRASTIM
     Indication: Neutrophil count decreased
     Dosage: 300 MICROGRAM DAILY; 300 MICROGRAM, QD, DURATION : 2 DAYS
     Route: 050
     Dates: start: 20230914, end: 20230915
  27. FLUCONAZOLE [Concomitant]
     Active Substance: FLUCONAZOLE
     Indication: Antiviral prophylaxis
     Dosage: 200 MILLIGRAM DAILY; 200 MILLIGRAM, QD
     Route: 050
     Dates: start: 20230915
  28. POTASSIUM CHLORIDE [Concomitant]
     Active Substance: POTASSIUM CHLORIDE
     Indication: Fluid replacement
     Dosage: 1000 ML,  CONTINUOUS INFUSION; DURATION : 2 DAYS
     Route: 050
     Dates: start: 20230918, end: 20230919
  29. POTASSIUM CHLORIDE [Concomitant]
     Active Substance: POTASSIUM CHLORIDE
     Dosage: 250 ML, ONCE ONLY; DURATION : 1 DAY
     Route: 050
     Dates: start: 20230914, end: 20230914
  30. POTASSIUM CHLORIDE [Concomitant]
     Active Substance: POTASSIUM CHLORIDE
     Dosage: 1000 MILLILITER, CONTINUOUS INFUSION; DURATION : 1 DAY
     Dates: start: 20230915, end: 20230915
  31. POTASSIUM CHLORIDE [Concomitant]
     Active Substance: POTASSIUM CHLORIDE
     Dosage: 1000 ML AT ONCE; DURATION : 1 DAY
     Dates: start: 20230912, end: 20230912
  32. POTASSIUM CHLORIDE [Concomitant]
     Active Substance: POTASSIUM CHLORIDE
     Dosage: 1000 ML AT ONCE OVER 6 HOURS; DURATION : 1 DAY
     Route: 050
     Dates: start: 20230914, end: 20230914
  33. CALCIUM CHLORIDE [Concomitant]
     Active Substance: CALCIUM CHLORIDE
     Indication: Fluid replacement
     Dosage: 1000 MILLILITER, CONTINUOUS INFUSION; DURATION : 1 DAY
     Dates: start: 20230915, end: 20230915
  34. CALCIUM CHLORIDE [Concomitant]
     Active Substance: CALCIUM CHLORIDE
     Dosage: 250 ML, ONCE ONLY; DURATION : 1 DAY
     Route: 050
     Dates: start: 20230914, end: 20230914
  35. CALCIUM CHLORIDE [Concomitant]
     Active Substance: CALCIUM CHLORIDE
     Dosage: 1000 ML,  CONTINUOUS INFUSION; DURATION : 2 DAYS
     Route: 050
     Dates: start: 20230918, end: 20230919
  36. SODIUM LACTATE [Concomitant]
     Active Substance: SODIUM LACTATE
     Indication: Fluid replacement
     Dosage: 1000 ML,  CONTINUOUS INFUSION; DURATION :2 DAYS
     Route: 050
     Dates: start: 20230918, end: 20230919
  37. SODIUM LACTATE [Concomitant]
     Active Substance: SODIUM LACTATE
     Dosage: 250 ML, ONCE ONLY; ;DURATION : 1 DAY
     Route: 050
     Dates: start: 20230914, end: 20230914
  38. SODIUM LACTATE [Concomitant]
     Active Substance: SODIUM LACTATE
     Dosage: 1000 MILLILITER, CONTINUOUS INFUSION; DURATION : 1 DAY
     Dates: start: 20230915, end: 20230915
  39. LEVOMEPROMAZINE [Concomitant]
     Active Substance: LEVOMEPROMAZINE
     Indication: Nausea
     Dosage: 3.125 MG, PRN; AS NECESSARY
     Route: 050
     Dates: start: 20230906
  40. LEVOMEPROMAZINE [Concomitant]
     Active Substance: LEVOMEPROMAZINE
     Indication: Vomiting
  41. POLYETHYLENE GLYCOLS [Concomitant]
     Active Substance: POLYETHYLENE GLYCOLS
     Indication: Constipation
     Dosage: 2 DOSAGE FORMS DAILY; 1 SACHET EVERY 12H PER NEED; AS NECESSARY?					;
     Route: 050
     Dates: start: 20230911
  42. MAGNESIUM SULFATE [Concomitant]
     Active Substance: MAGNESIUM SULFATE
     Indication: Fluid replacement
     Dosage: 20 MMOL; DURATION : 1 DAY
     Route: 050
     Dates: start: 20230914, end: 20230914
  43. MEDIDERM [Concomitant]
     Indication: Rash
     Dosage: SACHET, PRN; AS NECESSARY?					;
     Route: 061
     Dates: start: 20230916
  44. MENTHOL [Concomitant]
     Active Substance: MENTHOL
     Indication: Rash
     Dosage: EVERY 6 HOURS, PRN; AS NECESSARY?					;
     Route: 061
     Dates: start: 20230915
  45. SODIUM CHLORIDE [Concomitant]
     Active Substance: SODIUM CHLORIDE
     Indication: Fluid replacement
     Dosage: 1000 ML AT ONCE; DURATION : 1 DAY
     Route: 050
     Dates: start: 20230913, end: 20230913
  46. ONDANSETRON [Concomitant]
     Active Substance: ONDANSETRON
     Indication: Nausea
     Dosage: 24 MILLIGRAM DAILY; 8 MG, Q8H, DURATION : 5 DAYS
     Route: 050
     Dates: start: 20230908, end: 20230912
  47. ONDANSETRON [Concomitant]
     Active Substance: ONDANSETRON
     Indication: Vomiting
     Dosage: 8 MG, PRN; AS NECESSARY, DURATION : 4 DAYS
     Route: 050
     Dates: start: 20230912, end: 20230915
  48. ACETAMINOPHEN [Concomitant]
     Active Substance: ACETAMINOPHEN
     Indication: Headache
     Dosage: 4000 MILLIGRAM DAILY; 1000 MG PRN EVERY 6 HOURS; AS NECESSARY, DURATION : 9 DAYS
     Route: 050
     Dates: start: 20230906, end: 20230914
  49. ACETAMINOPHEN [Concomitant]
     Active Substance: ACETAMINOPHEN
     Indication: Pyrexia
     Dosage: 4000 MILLIGRAM DAILY; 1000 MG, PRN EVERY 6 HOURS; AS NECESSARY
     Route: 050
     Dates: start: 20230914
  50. ACETAMINOPHEN [Concomitant]
     Active Substance: ACETAMINOPHEN
     Dosage: 4 GRAM DAILY; 1 GRAM, PRN EVERY 6 HOURS; AS NECESSARY
     Route: 050
     Dates: start: 20230914
  51. MEPERIDINE [Concomitant]
     Active Substance: MEPERIDINE
     Indication: Chills
     Dosage: 25-50 MG EVERY 4 HOURS IF NEEDED; AS NECESSARY?					;
     Route: 050
     Dates: start: 20230913
  52. PIPERACILLIN AND TAZOBACTAM [Concomitant]
     Active Substance: PIPERACILLIN SODIUM\TAZOBACTAM SODIUM
     Indication: Sepsis
     Dosage: 18 GRAM DAILY; 4.5 GRAM, Q6H, DURATION : 6 DAYS
     Route: 050
     Dates: start: 20230914, end: 20230919
  53. SANDO-K [Concomitant]
     Indication: Blood potassium decreased
     Dosage: 4 DOSAGE FORMS DAILY; 2 DOSAGE FORM, BID, UNIT DOSE : 4 DF, FREQUENCY TIME: 1 DAY, DURATION : 1 DAY
     Route: 050
     Dates: start: 20230914, end: 20230914
  54. SUCRALFATE [Concomitant]
     Active Substance: SUCRALFATE
     Indication: Reflux gastritis
     Dosage: 4 GRAM DAILY; 1 GRAM, PRN EVERY 6 HOURS, ORAL SUSPENSION; AS NECESSARY
     Route: 048
     Dates: start: 20230911
  55. TINZAPARIN [Concomitant]
     Active Substance: TINZAPARIN
     Indication: Prophylaxis
     Dosage: 4500 UNITS, QD;
     Route: 050
     Dates: start: 20230918
  56. ZOPICLONE [Concomitant]
     Active Substance: ZOPICLONE
     Indication: Insomnia
     Dosage: 3.75 MILLIGRAM DAILY; 3.75 MILLIGRAM, PRN AT NIGHT; AS NECESSARY, DURATION : 2 DAYS
     Route: 050
     Dates: start: 20230917, end: 20230918
  57. TAUROLIDINE [Concomitant]
     Active Substance: TAUROLIDINE
     Indication: Product used for unknown indication
  58. QV BATH [Concomitant]
     Indication: Product used for unknown indication

REACTIONS (1)
  - Uveitis [Recovering/Resolving]

NARRATIVE: CASE EVENT DATE: 20230919
